FAERS Safety Report 17562094 (Version 1)
Quarter: 2020Q1

REPORT INFORMATION
  Report Type: Report from Study
  Country: None (occurrence: AR)
  Receive Date: 20200319
  Receipt Date: 20200319
  Transmission Date: 20200409
  Serious: No
  Sender: FDA-Public Use
  Company Number: AR-ABBVIE-20K-007-3325311-00

PATIENT
  Age: 8 Year
  Sex: Female

DRUGS (1)
  1. HUMIRA [Suspect]
     Active Substance: ADALIMUMAB
     Indication: CROHN^S DISEASE
     Dosage: HUMIRA AC
     Route: 058
     Dates: start: 20170912

REACTIONS (2)
  - Anaemia [Unknown]
  - Liver scan abnormal [Unknown]

NARRATIVE: CASE EVENT DATE: 20200311
